FAERS Safety Report 9636744 (Version 3)
Quarter: 2013Q4

REPORT INFORMATION
  Report Type: Spontaneous
  Country: DK (occurrence: DK)
  Receive Date: 20131022
  Receipt Date: 20131126
  Transmission Date: 20140711
  Serious: Yes (Life-Threatening, Hospitalization)
  Sender: FDA-Public Use
  Company Number: DK-ROCHE-1290020

PATIENT
  Age: 71 Year
  Sex: Male

DRUGS (6)
  1. MABTHERA [Suspect]
     Indication: B-CELL LYMPHOMA
     Dosage: 800 MG X 1 I.V EGO AT MONTHLY INTERVALS
     Route: 042
     Dates: start: 20130325, end: 20130624
  2. BENDAMUSTINE HYDROCHLORIDE [Suspect]
     Indication: B-CELL LYMPHOMA
     Dosage: 177.9 MG X 2 EGO AT MONTHLY INTERVALS ?STRENGTH: 2.5 MG/ML.
     Route: 042
     Dates: start: 20130325, end: 20130624
  3. SELO-ZOK [Concomitant]
     Route: 065
  4. CENTYL MED KALIUMKLORID [Concomitant]
     Indication: RENAL CYST
     Route: 065
     Dates: start: 2006
  5. DIURAL (DENMARK) [Concomitant]
     Route: 065
  6. PANTOLOC [Concomitant]
     Route: 065

REACTIONS (5)
  - Interstitial lung disease [Recovering/Resolving]
  - Respiratory failure [Recovering/Resolving]
  - Pulmonary fibrosis [Recovering/Resolving]
  - Pancytopenia [Recovered/Resolved]
  - Sepsis [Unknown]
